FAERS Safety Report 4916665-1 (Version None)
Quarter: 2006Q1

REPORT INFORMATION
  Report Type: 
  Country: None (occurrence: None)
  Receive Date: 20060216
  Receipt Date: 20060216
  Transmission Date: 20060701
  Serious: Yes (Hospitalization)
  Sender: FDA-Public Use
  Company Number: None

PATIENT
  Age: 62 Year
  Sex: Male
  Weight: 75 kg

DRUGS (4)
  1. GEMCITABINE GIVEN9/27 [Suspect]
     Indication: METASTASES TO BONE
     Dosage: NOT IN CHART -GIVEN AT OUTSIDE HEMEONE CLINIC
  2. GEMCITABINE GIVEN9/27 [Suspect]
     Indication: METASTASES TO LIVER
     Dosage: NOT IN CHART -GIVEN AT OUTSIDE HEMEONE CLINIC
  3. GEMCITABINE GIVEN9/27 [Suspect]
     Indication: OESOPHAGEAL ADENOCARCINOMA
     Dosage: NOT IN CHART -GIVEN AT OUTSIDE HEMEONE CLINIC
  4. OXALIPLATIN [Suspect]

REACTIONS (2)
  - FEBRILE NEUTROPENIA [None]
  - PANCYTOPENIA [None]
